FAERS Safety Report 12248252 (Version 2)
Quarter: 2016Q2

REPORT INFORMATION
  Report Type: Report from Study
  Country: US (occurrence: US)
  Receive Date: 20160408
  Receipt Date: 20160412
  Transmission Date: 20160815
  Serious: No
  Sender: FDA-Public Use
  Company Number: US-AMGEN-USASP2016040906

PATIENT
  Age: 62 Year
  Sex: Male

DRUGS (1)
  1. ENBREL [Suspect]
     Active Substance: ETANERCEPT
     Indication: PSORIASIS
     Dosage: 50 MG, 2 TIMES/WK
     Route: 065
     Dates: start: 20160314

REACTIONS (5)
  - Device issue [Unknown]
  - Psoriasis [Unknown]
  - Fatigue [Unknown]
  - Injection site haemorrhage [Unknown]
  - Insomnia [Unknown]

NARRATIVE: CASE EVENT DATE: 201603
